FAERS Safety Report 18579406 (Version 1)
Quarter: 2020Q4

REPORT INFORMATION
  Report Type: Spontaneous
  Country: CN (occurrence: CN)
  Receive Date: 20201204
  Receipt Date: 20201204
  Transmission Date: 20210114
  Serious: Yes (Other)
  Sender: FDA-Public Use
  Company Number: CN-ROCHE-2725152

PATIENT
  Age: 74 Year
  Sex: Male

DRUGS (1)
  1. ALTEPLASE. [Suspect]
     Active Substance: ALTEPLASE
     Indication: CEREBRAL INFARCTION
     Route: 042

REACTIONS (1)
  - Therapeutic product effect incomplete [Unknown]
